FAERS Safety Report 9842387 (Version 2)
Quarter: 2015Q3

REPORT INFORMATION
  Report Type: Spontaneous
  Country: US (occurrence: US)
  Receive Date: 20140124
  Receipt Date: 20150730
  Transmission Date: 20151125
  Serious: No
  Sender: FDA-Public Use
  Company Number: US-GILEAD-2011-0036416

PATIENT
  Age: 91 Year
  Sex: Male

DRUGS (5)
  1. RANEXA [Suspect]
     Active Substance: RANOLAZINE
     Indication: ANGINA PECTORIS
     Route: 048
  2. GLYBURIDE. [Concomitant]
     Active Substance: GLYBURIDE
  3. DILTIAZEM [Concomitant]
     Active Substance: DILTIAZEM
  4. SIMVASTATIN. [Concomitant]
     Active Substance: SIMVASTATIN
  5. NITRO PATCH [Concomitant]
     Active Substance: NITROGLYCERIN

REACTIONS (1)
  - Asthenia [Unknown]
